FAERS Safety Report 10221068 (Version 4)
Quarter: 2014Q4

REPORT INFORMATION
  Report Type: Report from Study
  Country: FR (occurrence: FR)
  Receive Date: 20140606
  Receipt Date: 20141020
  Transmission Date: 20150528
  Serious: Yes (Life-Threatening, Hospitalization, Other)
  Sender: FDA-Public Use
  Company Number: FR-ASTELLAS-2014EU003312AA

PATIENT
  Age: 18 Year
  Sex: Male

DRUGS (2)
  1. MICAFUNGIN [Suspect]
     Active Substance: MICAFUNGIN
     Indication: ANTIFUNGAL PROPHYLAXIS
     Route: 042
     Dates: start: 20140114, end: 20140129
  2. CICLOSPORIN [Concomitant]
     Active Substance: CYCLOSPORINE
     Indication: GRAFT VERSUS HOST DISEASE
     Dosage: UNK UNK, UNKNOWN FREQ.
     Route: 042

REACTIONS (2)
  - Drug resistance [Unknown]
  - Fusarium infection [Recovered/Resolved]

NARRATIVE: CASE EVENT DATE: 20140129
